FAERS Safety Report 18382499 (Version 1)
Quarter: 2020Q4

REPORT INFORMATION
  Report Type: Spontaneous
  Country: US (occurrence: US)
  Receive Date: 20201014
  Receipt Date: 20201014
  Transmission Date: 20210114
  Serious: No
  Sender: FDA-Public Use
  Company Number: US-ALLERGAN-2034266US

PATIENT
  Sex: Female

DRUGS (3)
  1. UBRELVY [Suspect]
     Active Substance: UBROGEPANT
     Indication: MIGRAINE
  2. DEXAMETHASONE. [Concomitant]
     Active Substance: DEXAMETHASONE
     Indication: PRODUCT USED FOR UNKNOWN INDICATION
  3. SUMATRIPTAN. [Concomitant]
     Active Substance: SUMATRIPTAN
     Indication: PRODUCT USED FOR UNKNOWN INDICATION

REACTIONS (3)
  - Therapeutic product effect incomplete [Unknown]
  - Musculoskeletal stiffness [Unknown]
  - Medication overuse headache [Unknown]
